FAERS Safety Report 17159038 (Version 1)
Quarter: 2019Q4

REPORT INFORMATION
  Report Type: Spontaneous
  Country: US (occurrence: US)
  Receive Date: 20191214
  Receipt Date: 20191214
  Transmission Date: 20200122
  Serious: No
  Sender: FDA-Public Use
  Company Number: None

PATIENT
  Age: 56 Year
  Sex: Female
  Weight: 74.7 kg

DRUGS (5)
  1. METFORMIN [Concomitant]
     Active Substance: METFORMIN HYDROCHLORIDE
  2. CENTRUM MULTIVITAMIN/MULTIMINERAL SUPPLEMENT [Concomitant]
     Active Substance: MINERALS\VITAMINS
  3. ATORVASTATIN [Suspect]
     Active Substance: ATORVASTATIN
     Indication: HYPERCHOLESTEROLAEMIA
     Dosage: ?          QUANTITY:1 TABLET(S);?
     Route: 048
     Dates: start: 20191120, end: 20191201
  4. VITAMIN D [Concomitant]
     Active Substance: VITAMIN D NOS
  5. LISINOPRIL 5 MG [Concomitant]
     Active Substance: LISINOPRIL

REACTIONS (2)
  - Insomnia [None]
  - Night sweats [None]

NARRATIVE: CASE EVENT DATE: 20191120
